FAERS Safety Report 5290881-4 (Version None)
Quarter: 2007Q2

REPORT INFORMATION
  Report Type: 
  Country: None (occurrence: None)
  Receive Date: 20070409
  Receipt Date: 20070329
  Transmission Date: 20071010
  Serious: Yes (Other)
  Sender: FDA-Public Use
  Company Number: NL-PFIZER INC-2007025614

PATIENT
  Age: 48 Year
  Sex: Male

DRUGS (1)
  1. CABERGOLINE [Suspect]
     Indication: PROLACTINOMA

REACTIONS (6)
  - BLOOD PROLACTIN INCREASED [None]
  - BONE DISORDER [None]
  - HEADACHE [None]
  - INTRACRANIAL HYPOTENSION [None]
  - NAUSEA [None]
  - SINUS CONGESTION [None]
